FAERS Safety Report 4680718-6 (Version None)
Quarter: 2005Q2

REPORT INFORMATION
  Report Type: 
  Country: None (occurrence: None)
  Receive Date: 20050601
  Receipt Date: 20050519
  Transmission Date: 20051028
  Serious: Yes (Disabling)
  Sender: FDA-Public Use
  Company Number: 2005078058

PATIENT
  Age: 34 Year
  Sex: Female
  Weight: 52 kg

DRUGS (3)
  1. ZITHROMAX [Suspect]
     Indication: TONSILLITIS
     Dosage: 500 MG (500 MG, 1 IN 1 D), ORAL
     Route: 048
     Dates: start: 20050421, end: 20050423
  2. DROSPIRENONE/ETHINYLESTRADIOL (DROSPIRENONE, ETHINYLESTRADIOL) [Concomitant]
  3. ALL OTHER THERAPEUTIC PRODUCTS (ALL OTHER THERAPEUTIC PRODUCTS) [Concomitant]

REACTIONS (5)
  - HEADACHE [None]
  - NAUSEA [None]
  - SENSATION OF HEAVINESS [None]
  - SOMNOLENCE [None]
  - VOMITING [None]
